FAERS Safety Report 24577535 (Version 2)
Quarter: 2024Q4

REPORT INFORMATION
  Report Type: Spontaneous
  Country: JP (occurrence: JP)
  Receive Date: 20241104
  Receipt Date: 20241120
  Transmission Date: 20250114
  Serious: Yes (Life-Threatening, Other)
  Sender: PFIZER
  Company Number: JP-PFIZER INC-202400291675

PATIENT
  Age: 51 Year
  Sex: Male

DRUGS (8)
  1. CLINDAMYCIN [Suspect]
     Active Substance: CLINDAMYCIN
     Indication: Pneumonia
     Dosage: 600 MG, 3X/DAY
  2. CLINDAMYCIN [Suspect]
     Active Substance: CLINDAMYCIN
     Indication: Empyema
  3. CEFAZOLIN [Suspect]
     Active Substance: CEFAZOLIN
     Indication: Pneumonia
     Dosage: 2 G, 3X/DAY
  4. CEFAZOLIN [Suspect]
     Active Substance: CEFAZOLIN
     Indication: Empyema
  5. CEFOTIAM [Suspect]
     Active Substance: CEFOTIAM
     Indication: Pneumonia
     Dosage: 2 G, 3X/DAY
  6. CEFOTIAM [Suspect]
     Active Substance: CEFOTIAM
     Indication: Empyema
  7. FLOMOXEF [Suspect]
     Active Substance: FLOMOXEF
     Indication: Pneumonia
     Dosage: 2 G, 2X/DAY
  8. FLOMOXEF [Suspect]
     Active Substance: FLOMOXEF
     Indication: Empyema

REACTIONS (2)
  - Drug ineffective [Unknown]
  - Off label use [Unknown]
